FAERS Safety Report 18682193 (Version 1)
Quarter: 2020Q4

REPORT INFORMATION
  Report Type: Spontaneous
  Country: US (occurrence: US)
  Receive Date: 20201229
  Receipt Date: 20201229
  Transmission Date: 20210114
  Serious: Yes (Death)
  Sender: FDA-Public Use
  Company Number: None

PATIENT
  Sex: Female

DRUGS (3)
  1. GAMMAGARD [Suspect]
     Active Substance: HUMAN IMMUNOGLOBULIN G
     Indication: BLOOD IMMUNOGLOBULIN G DECREASED
     Dosage: ?          OTHER FREQUENCY:EVERY 3 WEEKS;?
     Route: 042
     Dates: start: 20200226
  2. NAPROXEN, TIZANIDINE, MONTELUKAST, METFORMIN, LISINOPRIL, NUCYNTA [Concomitant]
  3. GABAPENTIN, HYDROCHLOROTHIAZIDE [Concomitant]

REACTIONS (1)
  - Death [None]
